FAERS Safety Report 9115438 (Version 1)
Quarter: 2013Q1

REPORT INFORMATION
  Report Type: Spontaneous
  Country: US (occurrence: None)
  Receive Date: 20130128
  Receipt Date: 20130128
  Transmission Date: 20140127
  Serious: Yes (Other)
  Sender: FDA-Public Use
  Company Number: AUR-APL-2013-00904

PATIENT
  Age: 46 Year
  Sex: Female
  Weight: 138 kg

DRUGS (7)
  1. LAMOTRIGINE (LAMOTRIGINE) [Suspect]
     Indication: DEPRESSION
     Dosage: (100 MG, 1 D), UNKNOWN
     Dates: start: 2011
  2. LYRICA (PREGABALIN) [Suspect]
     Indication: FIBROMYALGIA
     Dosage: 400 MG (200 MG, 2 IN 1 D), UNKNOWN
     Dates: end: 20121224
  3. HYDROCORTISONE [Suspect]
     Indication: PRURITUS
     Dates: start: 201212
  4. ATARAX (HYDROXYZINE) [Suspect]
     Indication: PRURITUS
     Dosage: 75 MG [25 MG, 1 IN 8 HR) (V.15.1]
     Dates: start: 201212
  5. BENADRYL (DIPHENHYDRAMINE HYDROCHLORIDE) [Suspect]
     Indication: PRURITUS
     Dosage: UNKNOWN
     Dates: start: 201212
  6. CYMBALTA (DULOXETINE HYDROCHLORIDE) [Suspect]
     Indication: DEPRESSION
     Dosage: (30 MG, 1 D)., UNKNOWN
     Dates: start: 2007
  7. PAXIL [Suspect]
     Indication: DEPRESSION
     Dosage: (30 MG, 1 D, UNKNOWN
     Dates: start: 2012

REACTIONS (7)
  - Vision blurred [None]
  - Depression [None]
  - Hypertension [None]
  - Drug administration error [None]
  - Eyelids pruritus [None]
  - Pruritus [None]
  - Drug ineffective [None]
